FAERS Safety Report 17205919 (Version 1)
Quarter: 2019Q4

REPORT INFORMATION
  Report Type: Spontaneous
  Country: TR (occurrence: TR)
  Receive Date: 20191227
  Receipt Date: 20191227
  Transmission Date: 20200122
  Serious: Yes (Life-Threatening, Other)
  Sender: FDA-Public Use
  Company Number: TR-ALKEM LABORATORIES LIMITED-TR-ALKEM-2019-02482

PATIENT
  Age: 73 Year
  Sex: Male
  Weight: 86 kg

DRUGS (5)
  1. RITUXIMAB. [Suspect]
     Active Substance: RITUXIMAB
     Indication: IMMUNOSUPPRESSANT DRUG THERAPY
     Dosage: 1 G, Q 12 PER HOUR, (TWO WEEKS APART)
     Route: 065
  2. MYCOPHENOLATE MOFETIL. [Suspect]
     Active Substance: MYCOPHENOLATE MOFETIL
     Indication: IMMUNOSUPPRESSANT DRUG THERAPY
     Dosage: 2 G, OD
     Route: 065
  3. METHYLPREDNISOLONE. [Suspect]
     Active Substance: METHYLPREDNISOLONE
     Indication: PEMPHIGUS
     Dosage: 120 MG, OD, (AROUND 1.5 MG/KG/DAY)
     Route: 065
  4. IMMUNOGLOBULIN [Concomitant]
     Indication: PEMPHIGUS
     Dosage: 0.4,G/KG,OD
     Route: 042
  5. VALSARTAN 80 MG, HYDROCHLOROTHIAZIDE 12.5 MG [Concomitant]
     Indication: HYPERTENSION
     Dosage: UNK, OD
     Route: 065

REACTIONS (5)
  - Pneumocystis jirovecii pneumonia [Unknown]
  - Bacteraemia [Unknown]
  - Lung abscess [Unknown]
  - Cytomegalovirus infection [Unknown]
  - Endocarditis [Unknown]
